FAERS Safety Report 19459826 (Version 1)
Quarter: 2021Q2

REPORT INFORMATION
  Report Type: Spontaneous
  Country: CN (occurrence: CN)
  Receive Date: 20210625
  Receipt Date: 20210625
  Transmission Date: 20210717
  Serious: Yes (Other)
  Sender: FDA-Public Use
  Company Number: CN-SUN PHARMACEUTICAL INDUSTRIES LTD-2021R1-301239

PATIENT
  Age: 45 Year
  Sex: Female

DRUGS (2)
  1. CARBOPLATIN. [Suspect]
     Active Substance: CARBOPLATIN
     Indication: CHEMOTHERAPY
     Dosage: 600 MILLIGRAM DAY1, CYCLED EVERY 21 DAYS
     Route: 042
     Dates: start: 20190228
  2. PYROTINIB [Suspect]
     Active Substance: PYROTINIB
     Indication: CHEMOTHERAPY
     Dosage: 400 MILLIGRAM, QD (DAYS 1?21)
     Route: 048
     Dates: start: 20190228

REACTIONS (1)
  - Drug ineffective [Unknown]
